FAERS Safety Report 7988510-1 (Version None)
Quarter: 2011Q4

REPORT INFORMATION
  Report Type: 
  Country: None (occurrence: None)
  Receive Date: 20111216
  Receipt Date: 20111213
  Transmission Date: 20120403
  Serious: Yes (Hospitalization)
  Sender: FDA-Public Use
  Company Number: ZA-GILEAD-2011-0047913

PATIENT
  Sex: Female

DRUGS (3)
  1. SIMVASTATIN [Concomitant]
     Dosage: 20 MG, QD
  2. TRUVADA [Suspect]
     Indication: PROPHYLAXIS
     Dosage: 1 DF, QD
  3. ALUVIA [Concomitant]
     Indication: PROPHYLAXIS
     Dosage: 250 MG, BID

REACTIONS (2)
  - MYOSITIS [None]
  - RENAL FAILURE [None]
